FAERS Safety Report 9354140 (Version 2)
Quarter: 2013Q3

REPORT INFORMATION
  Report Type: Spontaneous
  Country: US (occurrence: US)
  Receive Date: 20130618
  Receipt Date: 20130821
  Transmission Date: 20140515
  Serious: Yes (Other)
  Sender: FDA-Public Use
  Company Number: US-GLAXOSMITHKLINE-A1027272A

PATIENT
  Sex: Female

DRUGS (2)
  1. VENTOLIN [Suspect]
     Indication: ASTHMA
     Dosage: 2PUFF AS REQUIRED
     Route: 055
  2. ESTROGEN + PROGESTERONE [Concomitant]

REACTIONS (3)
  - Angle closure glaucoma [Unknown]
  - Open angle glaucoma [Unknown]
  - Intraocular pressure increased [Not Recovered/Not Resolved]
